FAERS Safety Report 19193710 (Version 1)
Quarter: 2021Q2

REPORT INFORMATION
  Report Type: Spontaneous
  Country: US (occurrence: US)
  Receive Date: 20210428
  Receipt Date: 20210428
  Transmission Date: 20210717
  Serious: Yes (Disabling)
  Sender: FDA-Public Use
  Company Number: None

PATIENT
  Age: 54 Year
  Sex: Female
  Weight: 60.75 kg

DRUGS (2)
  1. ADVIL [Concomitant]
     Active Substance: IBUPROFEN
  2. LARIAM [Suspect]
     Active Substance: MEFLOQUINE HYDROCHLORIDE
     Indication: MALARIA PROPHYLAXIS
     Dosage: ?          QUANTITY:1 TABLET(S);?
     Route: 048
     Dates: start: 19910801, end: 19930501

REACTIONS (6)
  - Headache [None]
  - Fatigue [None]
  - Dizziness [None]
  - Malaria [None]
  - Food allergy [None]
  - Thyroid disorder [None]

NARRATIVE: CASE EVENT DATE: 19910801
